FAERS Safety Report 12508147 (Version 3)
Quarter: 2022Q3

REPORT INFORMATION
  Report Type: Spontaneous
  Country: US (occurrence: US)
  Receive Date: 20160629
  Receipt Date: 20220706
  Transmission Date: 20221027
  Serious: No
  Sender: FDA-Public Use
  Company Number: US-PFIZER INC-2016286620

PATIENT
  Age: 46 Year
  Sex: Male

DRUGS (2)
  1. ZARONTIN [Suspect]
     Active Substance: ETHOSUXIMIDE
     Indication: Seizure
     Dosage: UNK
  2. ZARONTIN [Suspect]
     Active Substance: ETHOSUXIMIDE
     Dosage: LIQUID, 250MG PER 5ML, 1 TSP BY MOUTH IN THE MORNING AND EVENING, AND HALF A TSP AT NOON
     Route: 048

REACTIONS (2)
  - Hiccups [Unknown]
  - Off label use [Unknown]
